FAERS Safety Report 18039204 (Version 1)
Quarter: 2020Q3

REPORT INFORMATION
  Report Type: Spontaneous
  Country: ES (occurrence: ES)
  Receive Date: 20200718
  Receipt Date: 20200718
  Transmission Date: 20201103
  Serious: Yes (Life-Threatening, Hospitalization)
  Sender: FDA-Public Use
  Company Number: ES-CADILA HEALTHCARE LIMITED-ES-ZYDUS-028057

PATIENT

DRUGS (3)
  1. BICALUTAMIDE. [Suspect]
     Active Substance: BICALUTAMIDE
     Indication: HORMONE-DEPENDENT PROSTATE CANCER
     Dosage: 50 MILLIGRAM,(INTERVAL :1 DAYS)
     Route: 048
     Dates: start: 20170413, end: 20170506
  2. RIVOTRIL [Concomitant]
     Active Substance: CLONAZEPAM
     Dosage: .5 MILLIGRAM,60 TABLETS,(INTERVAL :1 DAYS)
     Route: 048
     Dates: start: 201105, end: 20170506
  3. AMITRIPTYLINE HYDROCHLORIDE. [Suspect]
     Active Substance: AMITRIPTYLINE HYDROCHLORIDE
     Indication: PRODUCT USE ISSUE
     Dosage: 75 MILLIGRAM,(INTERVAL :1 DAYS)
     Route: 048
     Dates: start: 201002, end: 20170506

REACTIONS (2)
  - Electrocardiogram QT prolonged [Recovered/Resolved with Sequelae]
  - Torsade de pointes [Recovered/Resolved with Sequelae]

NARRATIVE: CASE EVENT DATE: 20170506
